FAERS Safety Report 6152809-4 (Version None)
Quarter: 2009Q2

REPORT INFORMATION
  Report Type: 
  Country: None (occurrence: None)
  Receive Date: 20090413
  Receipt Date: 20090401
  Transmission Date: 20091009
  Serious: Yes (Other)
  Sender: FDA-Public Use
  Company Number: US-PFIZER INC-2009192623

PATIENT
  Sex: Female
  Weight: 72.562 kg

DRUGS (2)
  1. XALATAN [Suspect]
     Indication: KERATOCONJUNCTIVITIS SICCA
     Dosage: UNK
  2. ALL OTHER THERAPEUTIC PRODUCTS [Concomitant]
     Dosage: UNK

REACTIONS (2)
  - CATARACT OPERATION [None]
  - KNEE ARTHROPLASTY [None]
